FAERS Safety Report 6349603-8 (Version None)
Quarter: 2009Q3

REPORT INFORMATION
  Report Type: 
  Country: None (occurrence: None)
  Receive Date: 20090911
  Receipt Date: 20090908
  Transmission Date: 20100115
  Serious: Yes (Congenital Anomaly)
  Sender: FDA-Public Use
  Company Number: GB-TEVA-162896ISR

PATIENT
  Sex: Female
  Weight: 3.328 kg

DRUGS (1)
  1. CIPROFLAXACIN [Suspect]
     Route: 064
     Dates: start: 20070215, end: 20070219

REACTIONS (2)
  - ABNORMAL PALMAR/PLANTAR CREASES [None]
  - MATERNAL DRUGS AFFECTING FOETUS [None]
